FAERS Safety Report 6311113-1 (Version None)
Quarter: 2009Q3

REPORT INFORMATION
  Report Type: 
  Country: None (occurrence: None)
  Receive Date: 20090817
  Receipt Date: 20090806
  Transmission Date: 20100115
  Serious: Yes (Other)
  Sender: FDA-Public Use
  Company Number: US-BAYER-200929343NA

PATIENT
  Age: 27 Year
  Sex: Female
  Weight: 115 kg

DRUGS (1)
  1. MIRENA [Suspect]
     Indication: CONTRACEPTION
     Dosage: CONTINUOUS
     Route: 015
     Dates: start: 20090513

REACTIONS (5)
  - BREAST DISCHARGE [None]
  - COMPLICATION OF DEVICE INSERTION [None]
  - MAJOR DEPRESSION [None]
  - VAGINAL DISCHARGE [None]
  - WEIGHT INCREASED [None]
